FAERS Safety Report 23043439 (Version 3)
Quarter: 2024Q2

REPORT INFORMATION
  Report Type: Spontaneous
  Country: US (occurrence: US)
  Receive Date: 20231009
  Receipt Date: 20240608
  Transmission Date: 20240715
  Serious: No
  Sender: FDA-Public Use
  Company Number: US-SA-SAC20231003001411

PATIENT
  Age: 54 Year
  Sex: Female

DRUGS (2)
  1. DUPIXENT [Suspect]
     Active Substance: DUPILUMAB
     Indication: Eczema
     Dosage: 600 MG, 1X
     Route: 058
     Dates: start: 20230803, end: 20230803
  2. DUPIXENT [Suspect]
     Active Substance: DUPILUMAB
     Indication: Dermatitis atopic
     Dosage: 300 MG SUBCUTANEOUS INJECTION ON DAY 15 (UNKNOWN), THEN EVERY 14 DAYS THEREAFTER
     Route: 058
     Dates: start: 202308

REACTIONS (2)
  - Eczema eyelids [Unknown]
  - Eczema [Unknown]

NARRATIVE: CASE EVENT DATE: 20230927
